FAERS Safety Report 8831641 (Version 2)
Quarter: 2012Q4

REPORT INFORMATION
  Report Type: 
  Country: JP (occurrence: JP)
  Receive Date: 20121009
  Receipt Date: 20121025
  Transmission Date: 20130627
  Serious: Yes (Other)
  Sender: FDA-Public Use
  Company Number: JP-GLAXOSMITHKLINE-B0835768A

PATIENT
  Age: 37 Year
  Sex: Female

DRUGS (10)
  1. ARIXTRA [Suspect]
     Route: 058
  2. PREDNISOLONE [Concomitant]
     Route: 065
  3. PLETAAL [Concomitant]
     Route: 048
  4. PROCYLIN [Concomitant]
     Route: 048
  5. OXINORM [Concomitant]
     Route: 048
  6. OXYCONTIN [Concomitant]
     Route: 048
  7. KETAMINE HYDROCHLORIDE [Concomitant]
     Route: 048
  8. PROPOFOL [Concomitant]
     Route: 042
  9. REMIFENTANIL HYDROCHLORIDE [Concomitant]
     Route: 042
  10. ROCURONIUM BROMIDE [Concomitant]
     Route: 042

REACTIONS (5)
  - Arm amputation [Unknown]
  - Cerebral haemorrhage [Recovered/Resolved]
  - Hemiplegia [Recovered/Resolved]
  - Anaemia [Recovered/Resolved]
  - Hepatic function abnormal [Recovered/Resolved]
